FAERS Safety Report 8152208-X (Version None)
Quarter: 2012Q1

REPORT INFORMATION
  Report Type: 
  Country: None (occurrence: None)
  Receive Date: 20120215
  Receipt Date: 20120215
  Transmission Date: 20120608
  Serious: Yes (Hospitalization, Other)
  Sender: FDA-Public Use
  Company Number: None

PATIENT
  Age: 79 Year
  Sex: Female

DRUGS (5)
  1. ONDANSETRON [Concomitant]
  2. ALLOPURINOL [Concomitant]
  3. REVLIMID [Suspect]
     Indication: MULTIPLE MYELOMA
     Dosage: 15 MG DAILY X21D/28D ORALLY
     Route: 048
     Dates: start: 20110801
  4. ASPIRIN [Concomitant]
  5. HYDROCODONE BITARTRATE AND ACETAMINOPHEN [Concomitant]

REACTIONS (4)
  - ASTHENIA [None]
  - LUNG DISORDER [None]
  - PULMONARY OEDEMA [None]
  - CONFUSIONAL STATE [None]
